FAERS Safety Report 20778513 (Version 1)
Quarter: 2022Q2

REPORT INFORMATION
  Report Type: Spontaneous
  Country: US (occurrence: None)
  Receive Date: 20220503
  Receipt Date: 20220503
  Transmission Date: 20220721
  Serious: Yes (Other)
  Sender: FDA-Public Use
  Company Number: None

PATIENT
  Sex: Male

DRUGS (2)
  1. PRAVASTATIN [Suspect]
     Active Substance: PRAVASTATIN
  2. ROSUVASTATIN [Suspect]
     Active Substance: ROSUVASTATIN

REACTIONS (2)
  - Myalgia [None]
  - Joint injury [None]
